FAERS Safety Report 19973786 (Version 1)
Quarter: 2021Q4

REPORT INFORMATION
  Report Type: Spontaneous
  Country: RU (occurrence: RU)
  Receive Date: 20211020
  Receipt Date: 20211020
  Transmission Date: 20220303
  Serious: Yes (Other)
  Sender: FDA-Public Use
  Company Number: RU-ROCHE-2932543

PATIENT
  Age: 73 Year

DRUGS (1)
  1. ATEZOLIZUMAB [Suspect]
     Active Substance: ATEZOLIZUMAB
     Indication: Product used for unknown indication
     Route: 065

REACTIONS (5)
  - Dyspnoea [Unknown]
  - Chest pain [Unknown]
  - Productive cough [Unknown]
  - Asthenia [Unknown]
  - Therapy partial responder [Unknown]
